FAERS Safety Report 12393262 (Version 1)
Quarter: 2016Q2

REPORT INFORMATION
  Report Type: Spontaneous
  Country: US (occurrence: None)
  Receive Date: 20160520
  Receipt Date: 20160520
  Transmission Date: 20160815
  Serious: No
  Sender: FDA-Public Use
  Company Number: None

PATIENT
  Sex: Female
  Weight: 68.04 kg

DRUGS (1)
  1. PAROXETINE. [Suspect]
     Active Substance: PAROXETINE
     Indication: GENERALISED ANXIETY DISORDER

REACTIONS (7)
  - Skin odour abnormal [None]
  - Decreased interest [None]
  - Abnormal dreams [None]
  - Weight increased [None]
  - Feeling abnormal [None]
  - Insomnia [None]
  - Acne cystic [None]
